FAERS Safety Report 10142835 (Version 1)
Quarter: 2014Q2

REPORT INFORMATION
  Report Type: Spontaneous
  Country: US (occurrence: None)
  Receive Date: 20140429
  Receipt Date: 20140429
  Transmission Date: 20141212
  Serious: Yes (Hospitalization)
  Sender: FDA-Public Use
  Company Number: None

PATIENT
  Age: 73 Year
  Sex: Male
  Weight: 70.76 kg

DRUGS (13)
  1. DECITABINE [Suspect]
     Indication: ACUTE MYELOID LEUKAEMIA
     Dosage: IV-20MG/M2, QDX10
     Route: 042
  2. CIPROFLOXACIN [Concomitant]
  3. ALLOPURINOL [Concomitant]
  4. ALPRAZOLAM [Concomitant]
  5. OXYCODONE [Concomitant]
  6. HYDROCODONE [Concomitant]
  7. COMPAZINE [Concomitant]
  8. TEMAZEPAM [Concomitant]
  9. SIMVASTATIN [Concomitant]
  10. SERTRALINE [Concomitant]
  11. GABAPENTIN [Concomitant]
  12. VALACYCLOVIR [Concomitant]
  13. PANTOPRAZOLE [Concomitant]

REACTIONS (3)
  - Arthralgia [None]
  - Mobility decreased [None]
  - Arthritis bacterial [None]
